FAERS Safety Report 8501473-5 (Version None)
Quarter: 2012Q3

REPORT INFORMATION
  Report Type: 
  Country: None (occurrence: None)
  Receive Date: 20120710
  Receipt Date: 20120703
  Transmission Date: 20120928
  Serious: Yes (Death, Hospitalization)
  Sender: FDA-Public Use
  Company Number: PT-BAXTER-2012BAX010333

PATIENT
  Sex: Male

DRUGS (17)
  1. EXTRANEAL [Suspect]
     Route: 033
     Dates: end: 20120630
  2. SEVELAMER [Concomitant]
  3. LORAZEPAM [Concomitant]
  4. AMLODIPINE [Concomitant]
  5. SODIUM BICARBONATE [Suspect]
     Route: 033
     Dates: end: 20120630
  6. DARBEPOETIN ALFA [Concomitant]
  7. FINASTERIDE [Concomitant]
  8. LISINOPRIL [Concomitant]
  9. SODIUM BICARBONATE [Suspect]
     Route: 033
     Dates: end: 20120630
  10. SIMVASTATIN [Concomitant]
  11. PAROXETINE [Concomitant]
  12. CARVEDILOL [Concomitant]
  13. CINACALCET HYDROCHLORIDE [Concomitant]
  14. RISPERIDONE [Concomitant]
  15. OMEPRAZOLE [Concomitant]
  16. FUROSEMIDE [Concomitant]
  17. CALCIUM CARBONATE [Concomitant]

REACTIONS (2)
  - PNEUMONIA [None]
  - RESPIRATORY TRACT INFECTION [None]
